FAERS Safety Report 18362799 (Version 1)
Quarter: 2020Q4

REPORT INFORMATION
  Report Type: Spontaneous
  Country: PT (occurrence: PT)
  Receive Date: 20201008
  Receipt Date: 20201008
  Transmission Date: 20210114
  Serious: Yes (Other)
  Sender: FDA-Public Use
  Company Number: PT-GALDERMA-PT2020044764

PATIENT
  Age: 61 Year
  Sex: Male

DRUGS (1)
  1. DOXYCYCLINE. [Suspect]
     Active Substance: DOXYCYCLINE
     Indication: BOUTONNEUSE FEVER
     Route: 065

REACTIONS (3)
  - Dysphagia [Recovered/Resolved]
  - Intentional product use issue [Recovered/Resolved]
  - Glossopharyngeal nerve disorder [Recovered/Resolved]
